FAERS Safety Report 18461460 (Version 1)
Quarter: 2020Q4

REPORT INFORMATION
  Report Type: Spontaneous
  Country: CN (occurrence: CN)
  Receive Date: 20201104
  Receipt Date: 20201104
  Transmission Date: 20210114
  Serious: Yes (Other)
  Sender: FDA-Public Use
  Company Number: CN-009507513-2011CHN000076

PATIENT
  Age: 26 Year
  Sex: Female

DRUGS (9)
  1. INDOMETHACIN. [Concomitant]
     Active Substance: INDOMETHACIN
     Dosage: UNK
     Dates: start: 20191129
  2. PHENOBARBITAL. [Concomitant]
     Active Substance: PHENOBARBITAL
     Indication: EPILEPSY
     Dosage: 30 MILLIGRAM, QPM
     Route: 048
     Dates: start: 201906
  3. ORNIDAZOLE [Concomitant]
     Active Substance: ORNIDAZOLE
     Indication: ANTI-INFECTIVE THERAPY
     Dosage: 0.5 GRAM, Q8H
     Route: 041
     Dates: start: 20191128
  4. DEPAKENE [Interacting]
     Active Substance: VALPROIC ACID
     Indication: EPILEPSY
     Dosage: 1 GRAM, BID
     Route: 048
     Dates: start: 201906
  5. OXCARBAZEPINE. [Concomitant]
     Active Substance: OXCARBAZEPINE
     Indication: EPILEPSY
     Dosage: 0.6 GRAM, BID
     Route: 048
     Dates: start: 201906
  6. PIPERACILLIN AND TAZOBACTAM [Concomitant]
     Active Substance: PIPERACILLIN SODIUM\TAZOBACTAM SODIUM
     Dosage: 4.5 GRAM, Q8H
     Route: 041
     Dates: start: 20191030
  7. TIENAM [Suspect]
     Active Substance: CILASTATIN SODIUM\IMIPENEM
     Indication: ANTI-INFECTIVE THERAPY
     Dosage: 1 GRAM, Q8H
     Route: 041
     Dates: start: 20191129, end: 20191129
  8. OLANZAPINE. [Concomitant]
     Active Substance: OLANZAPINE
     Indication: EPILEPSY
     Dosage: UNK
     Route: 048
     Dates: start: 201906
  9. PIPERACILLIN AND TAZOBACTAM [Concomitant]
     Active Substance: PIPERACILLIN SODIUM\TAZOBACTAM SODIUM
     Indication: ANTI-INFECTIVE THERAPY
     Dosage: 4.5 GRAM, Q8H
     Route: 041
     Dates: start: 20191128, end: 20191128

REACTIONS (4)
  - Epilepsy [Unknown]
  - Drug interaction [Unknown]
  - Labelled drug-drug interaction issue [Unknown]
  - Drug level decreased [Unknown]

NARRATIVE: CASE EVENT DATE: 201911
